FAERS Safety Report 7516944-8 (Version None)
Quarter: 2011Q2

REPORT INFORMATION
  Report Type: 
  Country: None (occurrence: None)
  Receive Date: 20110601
  Receipt Date: 20110524
  Transmission Date: 20111010
  Serious: No
  Sender: FDA-Public Use
  Company Number: ES-SANOFI-AVENTIS-2011SA024024

PATIENT
  Age: 38 Year
  Sex: Female

DRUGS (9)
  1. LANTUS [Suspect]
     Indication: TYPE 1 DIABETES MELLITUS
     Route: 051
  2. OTHER HORMONES [Concomitant]
     Indication: HYPOTHYROIDISM
     Route: 065
  3. APIDRA SOLOSTAR [Suspect]
     Route: 051
     Dates: start: 20110201, end: 20110201
  4. APIDRA SOLOSTAR [Suspect]
     Indication: TYPE 1 DIABETES MELLITUS
     Route: 051
  5. SOLOSTAR [Suspect]
     Dates: start: 20080101, end: 20080101
  6. SOLOSTAR [Suspect]
     Indication: TYPE 1 DIABETES MELLITUS
  7. SOLOSTAR [Suspect]
  8. LANTUS [Suspect]
     Route: 051
     Dates: start: 20080101, end: 20080101
  9. SOLOSTAR [Suspect]
     Dates: start: 20110201, end: 20110201

REACTIONS (2)
  - BLOOD GLUCOSE DECREASED [None]
  - WRONG DRUG ADMINISTERED [None]
